FAERS Safety Report 8293959-6 (Version None)
Quarter: 2012Q2

REPORT INFORMATION
  Report Type: 
  Country: None (occurrence: None)
  Receive Date: 20120413
  Receipt Date: 20120413
  Transmission Date: 20120825
  Serious: No
  Sender: FDA-Public Use
  Company Number: None

PATIENT
  Sex: Female
  Weight: 63.5036 kg

DRUGS (1)
  1. COREPHARMA GENERIC FOR ADDERAL [Suspect]
     Indication: ATTENTION DEFICIT/HYPERACTIVITY DISORDER
     Dosage: 30 MG 2X PO

REACTIONS (4)
  - ABDOMINAL DISCOMFORT [None]
  - VOMITING [None]
  - DRY MOUTH [None]
  - HIRSUTISM [None]
